FAERS Safety Report 8234238-2 (Version None)
Quarter: 2012Q1

REPORT INFORMATION
  Report Type: 
  Country: None (occurrence: None)
  Receive Date: 20120321
  Receipt Date: 20110308
  Transmission Date: 20120608
  Serious: Yes (Other)
  Sender: FDA-Public Use
  Company Number: 2011SP010892

PATIENT
  Age: 9 Year

DRUGS (2)
  1. POSACONAZOLE [Suspect]
     Indication: ZYGOMYCOSIS
     Dosage: 400 MG;BID;200 MG; QID
  2. AMPHOTERICIN B [Concomitant]

REACTIONS (1)
  - LIVER OPERATION [None]
